FAERS Safety Report 4314365-2 (Version None)
Quarter: 2004Q1

REPORT INFORMATION
  Report Type: 
  Country: None (occurrence: None)
  Receive Date: 20040308
  Receipt Date: 20040303
  Transmission Date: 20041129
  Serious: Yes (Hospitalization)
  Sender: FDA-Public Use
  Company Number: 03P-131-0244471-00

PATIENT
  Age: 90 Year
  Sex: Female
  Weight: 63.5036 kg

DRUGS (4)
  1. TRICOR [Suspect]
     Indication: DYSLIPIDAEMIA
     Dosage: 160 MG, 1 IN 1 D, PER ORAL
     Route: 048
     Dates: start: 20031117, end: 20031130
  2. PROPRANOLOL HYDROCHLORIDE [Concomitant]
  3. LEVOTHYROXINER SODIUM [Concomitant]
  4. ATENOLOL [Concomitant]

REACTIONS (2)
  - DISORIENTATION [None]
  - RENAL FAILURE [None]
